FAERS Safety Report 17267172 (Version 1)
Quarter: 2020Q1

REPORT INFORMATION
  Report Type: Report from Study
  Country: US (occurrence: US)
  Receive Date: 20200114
  Receipt Date: 20200114
  Transmission Date: 20200409
  Serious: Yes (Death)
  Sender: FDA-Public Use
  Company Number: US-ROCHE-2522045

PATIENT
  Sex: Male

DRUGS (1)
  1. AVASTIN [Suspect]
     Active Substance: BEVACIZUMAB
     Indication: HEPATOBILIARY CANCER
     Dosage: 24 ML/VIAL, DAY 1 AND DAY 15, DOS: 30/JAN/2019 - 29/JUL/2019
     Route: 065
     Dates: start: 20190201

REACTIONS (1)
  - Death [Fatal]
